FAERS Safety Report 24593016 (Version 2)
Quarter: 2024Q4

REPORT INFORMATION
  Report Type: Spontaneous
  Country: US (occurrence: US)
  Receive Date: 20241108
  Receipt Date: 20241111
  Transmission Date: 20250114
  Serious: Yes (Other)
  Sender: PFIZER
  Company Number: US-PFIZER INC-PV202400139854

PATIENT
  Sex: Male

DRUGS (2)
  1. HYDROXYZINE PAMOATE [Interacting]
     Active Substance: HYDROXYZINE PAMOATE
     Indication: Post-traumatic stress disorder
     Dosage: UNK
     Route: 064
  2. ESCITALOPRAM [Interacting]
     Active Substance: ESCITALOPRAM OXALATE
     Indication: Post-traumatic stress disorder
     Dosage: UNK
     Route: 064

REACTIONS (3)
  - Maternal exposure during pregnancy [Unknown]
  - Neonatal behavioural syndrome [Recovered/Resolved]
  - Drug interaction [Unknown]
